FAERS Safety Report 20153390 (Version 1)
Quarter: 2021Q4

REPORT INFORMATION
  Report Type: Spontaneous
  Country: GB (occurrence: GB)
  Receive Date: 20211206
  Receipt Date: 20211206
  Transmission Date: 20220303
  Serious: Yes (Other)
  Sender: FDA-Public Use
  Company Number: GB-BIOGEN-2021BI01073677

PATIENT
  Sex: Female

DRUGS (1)
  1. NUSINERSEN [Suspect]
     Active Substance: NUSINERSEN
     Indication: Product used for unknown indication
     Route: 037

REACTIONS (3)
  - Scoliosis [Unknown]
  - Muscle spasms [Unknown]
  - Neurological examination abnormal [Unknown]
